FAERS Safety Report 4708986-2 (Version None)
Quarter: 2005Q3

REPORT INFORMATION
  Report Type: 
  Country: None (occurrence: None)
  Receive Date: 20050707
  Receipt Date: 20050621
  Transmission Date: 20060218
  Serious: Yes (Other)
  Sender: FDA-Public Use
  Company Number: 2005087336

PATIENT
  Sex: Male
  Weight: 80.7403 kg

DRUGS (7)
  1. DETROL [Suspect]
     Indication: ILL-DEFINED DISORDER
     Dates: start: 19990101, end: 19990101
  2. DETROL LA [Suspect]
     Indication: ILL-DEFINED DISORDER
     Dosage: 4 MG (4 MG, 1 IN 1 D)
     Dates: start: 20050523, end: 20050606
  3. FLOMAX ^BOEHRINGER INGELHEIM^ (TAMSULOSIN HYDROCHLORIDE) [Concomitant]
  4. ASPIRIN [Concomitant]
  5. THERAGRAN-M (MINERALS NOS, VITAMINS NOS) [Concomitant]
  6. CALCIUM (CALCIUM) [Concomitant]
  7. DITROPAN [Concomitant]

REACTIONS (13)
  - BLOOD PRESSURE ABNORMAL [None]
  - BODY HEIGHT DECREASED [None]
  - CATARACT [None]
  - CONDITION AGGRAVATED [None]
  - CYSTITIS [None]
  - DEFAECATION URGENCY [None]
  - DRUG INEFFECTIVE [None]
  - HYPERSENSITIVITY [None]
  - INFLUENZA [None]
  - NASAL CONGESTION [None]
  - PELVIC DISCOMFORT [None]
  - RHINORRHOEA [None]
  - URINE ABNORMALITY [None]
